FAERS Safety Report 6126823-9 (Version None)
Quarter: 2009Q1

REPORT INFORMATION
  Report Type: 
  Country: None (occurrence: None)
  Receive Date: 20090313
  Receipt Date: 20090226
  Transmission Date: 20090719
  Serious: Yes (Hospitalization)
  Sender: FDA-Public Use
  Company Number: GAM-033-09-DE

PATIENT
  Age: 67 Year
  Sex: Male

DRUGS (2)
  1. OCTAGAM [Suspect]
     Indication: DISEASE RECURRENCE
     Dosage: 30 G I.V.
     Route: 042
     Dates: start: 20090115, end: 20090115
  2. OCTAGAM [Suspect]
     Indication: INFECTION
     Dosage: 30 G I.V.
     Route: 042
     Dates: start: 20090115, end: 20090115

REACTIONS (3)
  - BACK PAIN [None]
  - DYSAESTHESIA [None]
  - INFUSION RELATED REACTION [None]
